FAERS Safety Report 4735683-X (Version None)
Quarter: 2005Q3

REPORT INFORMATION
  Report Type: 
  Country: None (occurrence: None)
  Receive Date: 20050805
  Receipt Date: 20050725
  Transmission Date: 20060218
  Serious: Yes (Hospitalization)
  Sender: FDA-Public Use
  Company Number: AU-JNJFOC-20050800437

PATIENT
  Age: 91 Year
  Sex: Female

DRUGS (11)
  1. TRAMADOL HCL [Suspect]
     Indication: BACK PAIN
     Route: 065
  2. ASPIRIN [Concomitant]
     Route: 065
  3. CANDESARTAN CILEXETIL [Concomitant]
     Route: 065
  4. GLICLAZIDE [Concomitant]
     Route: 065
  5. METFORMIN HCL [Concomitant]
     Route: 065
  6. THYROXINE SODIUM [Concomitant]
     Route: 065
  7. VENTOLIN ESPETTORANTE [Concomitant]
     Route: 065
  8. VENTOLIN ESPETTORANTE [Concomitant]
     Route: 065
  9. FLUTICASONE PROPIONATE [Concomitant]
     Route: 065
  10. PARACETAMOL [Concomitant]
     Route: 065
  11. TEMAZEPAM [Concomitant]
     Route: 065

REACTIONS (4)
  - COMA [None]
  - DISTURBANCE IN ATTENTION [None]
  - NAUSEA [None]
  - RESPIRATORY DEPRESSION [None]
